FAERS Safety Report 7209935-8 (Version None)
Quarter: 2011Q1

REPORT INFORMATION
  Report Type: 
  Country: None (occurrence: None)
  Receive Date: 20110105
  Receipt Date: 20101227
  Transmission Date: 20110831
  Serious: No
  Sender: FDA-Public Use
  Company Number: US-BIOGENIDEC-2010BI010094

PATIENT
  Age: 42 Year
  Sex: Female

DRUGS (1)
  1. TYSABRI [Suspect]
     Indication: MULTIPLE SCLEROSIS
     Route: 042
     Dates: start: 20100121

REACTIONS (7)
  - BRUXISM [None]
  - PAIN IN JAW [None]
  - HEADACHE [None]
  - ANXIETY [None]
  - TREMOR [None]
  - NERVOUSNESS [None]
  - PANIC ATTACK [None]
